FAERS Safety Report 7589179-0 (Version None)
Quarter: 2011Q3

REPORT INFORMATION
  Report Type: 
  Country: None (occurrence: None)
  Receive Date: 20110705
  Receipt Date: 20110622
  Transmission Date: 20111222
  Serious: Yes (Hospitalization)
  Sender: FDA-Public Use
  Company Number: US-JNJFOC-20110608185

PATIENT
  Sex: Male
  Weight: 20.5 kg

DRUGS (6)
  1. VYVANSE [Concomitant]
  2. REMICADE [Suspect]
     Route: 042
     Dates: start: 20100827
  3. FERRLECIT [Concomitant]
  4. PREDNISONE [Concomitant]
  5. REMICADE [Suspect]
     Indication: COLITIS ULCERATIVE
     Route: 042
     Dates: start: 20100129
  6. REMICADE [Suspect]
     Route: 042
     Dates: start: 20100630

REACTIONS (2)
  - DRUG INEFFECTIVE [None]
  - ILEOSTOMY CLOSURE [None]
